FAERS Safety Report 16165107 (Version 2)
Quarter: 2019Q2

REPORT INFORMATION
  Report Type: Spontaneous
  Country: US (occurrence: US)
  Receive Date: 20190405
  Receipt Date: 20190506
  Transmission Date: 20190711
  Serious: Yes (Other)
  Sender: FDA-Public Use
  Company Number: PHHY2019US069685

PATIENT
  Age: 4 Year
  Sex: Female

DRUGS (14)
  1. DEXAMETHASONE. [Suspect]
     Active Substance: DEXAMETHASONE
     Indication: T-CELL TYPE ACUTE LEUKAEMIA
     Route: 042
  2. DAUNORUBICIN [Suspect]
     Active Substance: DAUNORUBICIN
     Indication: T-CELL TYPE ACUTE LEUKAEMIA
     Dosage: UNK
     Route: 042
  3. PEG/L-ASPARAGINASE [Suspect]
     Active Substance: PEGASPARGASE
     Indication: MYELOID LEUKAEMIA
  4. ETOPOSIDE. [Suspect]
     Active Substance: ETOPOSIDE
     Indication: MYELOID LEUKAEMIA
  5. VINCRISTINE [Suspect]
     Active Substance: VINCRISTINE
     Indication: MYELOID LEUKAEMIA
  6. ETOPOSIDE. [Suspect]
     Active Substance: ETOPOSIDE
     Indication: T-CELL TYPE ACUTE LEUKAEMIA
     Route: 042
  7. NELARABINE [Suspect]
     Active Substance: NELARABINE
     Indication: ACUTE LEUKAEMIA
     Dosage: UNK
     Route: 042
  8. NELARABINE [Suspect]
     Active Substance: NELARABINE
     Indication: MYELOID LEUKAEMIA
  9. PEG/L-ASPARAGINASE [Suspect]
     Active Substance: PEGASPARGASE
     Indication: T-CELL TYPE ACUTE LEUKAEMIA
     Route: 042
  10. DAUNORUBICIN [Suspect]
     Active Substance: DAUNORUBICIN
     Indication: MYELOID LEUKAEMIA
  11. CYTARABINE. [Suspect]
     Active Substance: CYTARABINE
     Indication: T-CELL TYPE ACUTE LEUKAEMIA
     Route: 042
  12. CYTARABINE. [Suspect]
     Active Substance: CYTARABINE
     Indication: MYELOID LEUKAEMIA
  13. DEXAMETHASONE. [Suspect]
     Active Substance: DEXAMETHASONE
     Indication: MYELOID LEUKAEMIA
  14. VINCRISTINE [Suspect]
     Active Substance: VINCRISTINE
     Indication: T-CELL TYPE ACUTE LEUKAEMIA
     Route: 042

REACTIONS (4)
  - Acute leukaemia [Not Recovered/Not Resolved]
  - Bone marrow leukaemic cell infiltration [Not Recovered/Not Resolved]
  - White blood cell count increased [Unknown]
  - Malignant neoplasm progression [Not Recovered/Not Resolved]
